FAERS Safety Report 6339491-8 (Version None)
Quarter: 2009Q3

REPORT INFORMATION
  Report Type: 
  Country: None (occurrence: None)
  Receive Date: 20090903
  Receipt Date: 20090831
  Transmission Date: 20100115
  Serious: Yes (Other)
  Sender: FDA-Public Use
  Company Number: US-ELI_LILLY_AND_COMPANY-US200908006676

PATIENT
  Sex: Male

DRUGS (8)
  1. HUMULIN N [Suspect]
  2. TOPROL-XL [Concomitant]
  3. PROGRAF [Concomitant]
  4. FLOMAX [Concomitant]
  5. MYFORTIC [Concomitant]
  6. FINASTERIDE [Concomitant]
  7. LASIX [Concomitant]
  8. CLONIDINE [Concomitant]

REACTIONS (3)
  - ANXIETY [None]
  - HYPOGLYCAEMIA [None]
  - RENAL TRANSPLANT [None]
